FAERS Safety Report 20327531 (Version 2)
Quarter: 2022Q1

REPORT INFORMATION
  Report Type: Spontaneous
  Country: NL (occurrence: NL)
  Receive Date: 20220112
  Receipt Date: 20220113
  Transmission Date: 20220424
  Serious: Yes (Life-Threatening, Hospitalization)
  Sender: FDA-Public Use
  Company Number: None

PATIENT
  Sex: Female
  Weight: 90 kg

DRUGS (5)
  1. LOSARTAN [Suspect]
     Active Substance: LOSARTAN
     Indication: Hypertension
     Dosage: BRAND NAME NOT SPECIFIED, THERAPY START DATE :ASKU,1DD1ST,
     Dates: end: 20211205
  2. CHOLECALCIFEROL [Concomitant]
     Active Substance: CHOLECALCIFEROL
     Dosage: 1.25 G (GRAMS)/800 UNITS,THERAPY START DATE :ASKU, THERAPY END DATE: ASKU
  3. ROSUVASTATIN [Concomitant]
     Active Substance: ROSUVASTATIN
     Dosage: 10 MG  THERAPY START DATE :ASKU, THERAPY END DATE: ASKU
  4. HYDROXOCOBALAMIN [Concomitant]
     Active Substance: HYDROXOCOBALAMIN
     Dosage: INJECTION LIQUID, 500 MCG/ML THERAPY START DATE :ASKU, THERAPY END DATE: ASKU
  5. EUTHYROX [Concomitant]
     Active Substance: LEVOTHYROXINE SODIUM
     Dosage: 75 MICROGRAM DAILY; THERAPY START DATE :ASKU, THERAPY END DATE: ASKU

REACTIONS (1)
  - Pemphigoid [Not Recovered/Not Resolved]
